FAERS Safety Report 20722267 (Version 1)
Quarter: 2022Q2

REPORT INFORMATION
  Report Type: Spontaneous
  Country: US (occurrence: US)
  Receive Date: 20220418
  Receipt Date: 20220418
  Transmission Date: 20220720
  Serious: No
  Sender: FDA-Public Use
  Company Number: US-PFIZER INC-202101300103

PATIENT
  Age: 52 Year
  Sex: Female

DRUGS (2)
  1. IBRANCE [Suspect]
     Active Substance: PALBOCICLIB
     Dosage: 75 MG
     Dates: start: 20210608
  2. IBRANCE [Suspect]
     Active Substance: PALBOCICLIB
     Dosage: 75 MG
     Dates: start: 20210708

REACTIONS (8)
  - Fatigue [Unknown]
  - Dyspepsia [Unknown]
  - Dysphagia [Unknown]
  - Vomiting [Unknown]
  - Renal disorder [Unknown]
  - Oral pain [Unknown]
  - Quality of life decreased [Unknown]
  - Full blood count abnormal [Unknown]
